FAERS Safety Report 11242540 (Version 1)
Quarter: 2015Q3

REPORT INFORMATION
  Report Type: Spontaneous
  Country: IT (occurrence: None)
  Receive Date: 20150702
  Receipt Date: 20150702
  Transmission Date: 20151125
  Serious: Yes (Life-Threatening)
  Sender: FDA-Public Use
  Company Number: KAD201506-001931

PATIENT
  Age: 83 Year

DRUGS (5)
  1. RIBAVIRIN (RIBAVIRIN) [Suspect]
     Active Substance: RIBAVIRIN
     Indication: HEPATIC CIRRHOSIS
     Route: 048
     Dates: start: 20150427, end: 20150613
  2. LYRICA [Concomitant]
     Active Substance: PREGABALIN
  3. LASITONE (OSYROL-LASIX) (SPIRONOLACTONE, FUROSEMIDE) [Concomitant]
  4. SIMEPREVIR (SIMEPREVIR) [Suspect]
     Active Substance: SIMEPREVIR
     Indication: HEPATIC CIRRHOSIS
     Route: 048
     Dates: start: 20150410, end: 20150613
  5. SOFOSBUVIR (SOFOSBUVIR) [Suspect]
     Active Substance: SOFOSBUVIR
     Indication: HEPATIC CIRRHOSIS
     Route: 048
     Dates: start: 20150410, end: 20150613

REACTIONS (1)
  - Oesophageal varices haemorrhage [None]

NARRATIVE: CASE EVENT DATE: 20150613
